FAERS Safety Report 4530586-8 (Version None)
Quarter: 2004Q4

REPORT INFORMATION
  Report Type: 
  Country: None (occurrence: None)
  Receive Date: 20041216
  Receipt Date: 20041216
  Transmission Date: 20050328
  Serious: Yes (Life-Threatening, Hospitalization, Other)
  Sender: FDA-Public Use
  Company Number: None

PATIENT
  Sex: Male
  Weight: 86.1834 kg

DRUGS (2)
  1. BACTRIM DS [Suspect]
     Dates: start: 19990416
  2. TRILAFON [Suspect]
     Dosage: 4 MG X1 OR X2 A NIGHT
     Dates: start: 19990826

REACTIONS (5)
  - DENTAL CARIES [None]
  - FEELING ABNORMAL [None]
  - GRAND MAL CONVULSION [None]
  - PAROSMIA [None]
  - WEIGHT DECREASED [None]
